FAERS Safety Report 8842779 (Version 1)
Quarter: 2012Q4

REPORT INFORMATION
  Report Type: 
  Country: US (occurrence: US)
  Receive Date: 20121016
  Receipt Date: 20121016
  Transmission Date: 20130627
  Serious: No
  Sender: FDA-Public Use
  Company Number: US-ASTRAZENECA-2012SE75980

PATIENT
  Age: 67 Year
  Sex: Female
  Weight: 78 kg

DRUGS (3)
  1. SYMBICORT [Suspect]
     Indication: ASTHMA
     Dosage: 160 MCG, BID
     Route: 055
     Dates: start: 2009
  2. SYMBICORT [Suspect]
     Indication: ASTHMA
     Dosage: 80/4.5 MCG, UNKNOWN
     Route: 055
  3. PROVENTIL [Concomitant]

REACTIONS (2)
  - Feeling abnormal [Unknown]
  - Drug dose omission [Unknown]
